FAERS Safety Report 9703955 (Version 2)
Quarter: 2013Q4

REPORT INFORMATION
  Report Type: Report from Study
  Country: US (occurrence: US)
  Receive Date: 20131122
  Receipt Date: 20131217
  Transmission Date: 20140711
  Serious: No
  Sender: FDA-Public Use
  Company Number: US-ROCHE-1303422

PATIENT
  Age: 56 Year
  Sex: Male
  Weight: 62.5 kg

DRUGS (12)
  1. BEVACIZUMAB [Suspect]
     Indication: COLON CANCER
     Dosage: DATE OF LAST DOSE PRIOR TO SAE : 17/OCT/2013?TREATMENT INTERRUPTED
     Route: 042
     Dates: start: 20130905, end: 20131031
  2. BEVACIZUMAB [Suspect]
     Route: 042
     Dates: start: 20131114
  3. LEUCOVORIN [Suspect]
     Indication: COLON CANCER
     Dosage: DATE OF LAST DOSE PRIOR TO SAE : 17/OCT/2013?TREATMENT INTERRUPTED
     Route: 042
     Dates: start: 20130905, end: 20131031
  4. LEUCOVORIN [Suspect]
     Route: 042
     Dates: start: 20131114
  5. IRINOTECAN [Suspect]
     Indication: COLON CANCER
     Route: 065
  6. OXALIPLATIN [Suspect]
     Indication: COLON CANCER
     Dosage: DATE OF LAST DOSE PRIOR TO SAE : 17/OCT/2013?TREATMENT INTERRUPTED
     Route: 042
     Dates: start: 20130905, end: 20131031
  7. OXALIPLATIN [Suspect]
     Route: 042
     Dates: start: 20131114
  8. 5-FU [Suspect]
     Indication: COLON CANCER
     Dosage: DATE OF LAST DOSE PRIOR TO SAE : 17/OCT/2013?TREATMENT INTERRUPTED
     Route: 042
     Dates: start: 20130905, end: 20131031
  9. 5-FU [Suspect]
     Route: 042
     Dates: start: 20131114
  10. CAPECITABINE [Suspect]
     Indication: COLON CANCER
     Route: 065
  11. 5-FU [Suspect]
     Indication: COLON CANCER
     Dosage: DATE OF LAST DOSE PRIOR TO SAE : 14/NOV/2013?TREATMENT INTERRUPTED
     Route: 042
     Dates: start: 20130905, end: 20131031
  12. 5-FU [Suspect]
     Route: 042
     Dates: start: 20131114

REACTIONS (2)
  - Abscess [Not Recovered/Not Resolved]
  - Carbuncle [Not Recovered/Not Resolved]
